FAERS Safety Report 19907136 (Version 1)
Quarter: 2021Q4

REPORT INFORMATION
  Report Type: Spontaneous
  Country: US (occurrence: US)
  Receive Date: 20211001
  Receipt Date: 20211001
  Transmission Date: 20220303
  Serious: No
  Sender: FDA-Public Use
  Company Number: None

PATIENT
  Age: 35 Year
  Sex: Female

DRUGS (1)
  1. SUBLOCADE [Suspect]
     Active Substance: BUPRENORPHINE
     Indication: Drug dependence
     Dosage: ?          OTHER FREQUENCY:MONTHLY;
     Route: 058
     Dates: start: 20210916, end: 20210917

REACTIONS (4)
  - Mydriasis [None]
  - Anxiety [None]
  - Chills [None]
  - Drug withdrawal syndrome [None]

NARRATIVE: CASE EVENT DATE: 20210929
